FAERS Safety Report 24304834 (Version 1)
Quarter: 2024Q3

REPORT INFORMATION
  Report Type: Report from Study
  Country: US (occurrence: US)
  Receive Date: 20240910
  Receipt Date: 20240910
  Transmission Date: 20241016
  Serious: Yes (Hospitalization, Other)
  Sender: ABBVIE
  Company Number: US-ABBVIE-5913586

PATIENT
  Sex: Female

DRUGS (3)
  1. SKYRIZI [Suspect]
     Active Substance: RISANKIZUMAB-RZAA
     Indication: Crohn^s disease
     Dosage: DOSE: 600 MG/10 ML, WEEK 0
     Route: 042
     Dates: start: 202406, end: 202406
  2. SKYRIZI [Suspect]
     Active Substance: RISANKIZUMAB-RZAA
     Indication: Crohn^s disease
     Dosage: DOSE: 600 MG/10 ML, WEEK 4
     Route: 042
     Dates: start: 202407, end: 202407
  3. SKYRIZI [Suspect]
     Active Substance: RISANKIZUMAB-RZAA
     Indication: Crohn^s disease
     Dosage: DOSE: 600 MG/10 ML, WEEK 8
     Route: 042
     Dates: start: 20240814, end: 20240814

REACTIONS (7)
  - Intestinal obstruction [Unknown]
  - Impaired healing [Unknown]
  - Chills [Recovered/Resolved]
  - Night sweats [Recovered/Resolved]
  - Frequent bowel movements [Unknown]
  - Flatulence [Unknown]
  - Cold sweat [Unknown]

NARRATIVE: CASE EVENT DATE: 20240101
